FAERS Safety Report 4748741-0 (Version None)
Quarter: 2005Q3

REPORT INFORMATION
  Report Type: 
  Country: None (occurrence: None)
  Receive Date: 20050818
  Receipt Date: 20050812
  Transmission Date: 20060218
  Serious: Yes (Hospitalization)
  Sender: FDA-Public Use
  Company Number: 05-08-1418

PATIENT
  Age: 60 Year
  Sex: Male

DRUGS (2)
  1. CLOZAPINE [Suspect]
     Indication: SCHIZOPHRENIA
     Dosage: 250MG QD, ORAL
     Route: 048
     Dates: start: 19990601
  2. ANTIBIOTICS [Suspect]

REACTIONS (1)
  - CLOSTRIDIUM COLITIS [None]
